FAERS Safety Report 4714566-5 (Version None)
Quarter: 2005Q3

REPORT INFORMATION
  Report Type: 
  Country: None (occurrence: None)
  Receive Date: 20050714
  Receipt Date: 20050413
  Transmission Date: 20060218
  Serious: Yes (Hospitalization)
  Sender: FDA-Public Use
  Company Number: US-MERCK-0504USA02185

PATIENT
  Age: 80 Year
  Sex: Male
  Weight: 68 kg

DRUGS (4)
  1. VIOXX [Suspect]
     Indication: OSTEOARTHRITIS
     Route: 048
     Dates: start: 19991001, end: 20041001
  2. TERAZOSIN HYDROCHLORIDE [Concomitant]
     Route: 065
  3. TYLENOL [Concomitant]
     Indication: OSTEOARTHRITIS
     Route: 065
     Dates: start: 19750101
  4. HYDROCHLOROTHIAZIDE [Concomitant]
     Indication: HYPERTENSION
     Route: 065
     Dates: start: 19970101

REACTIONS (15)
  - ABDOMINAL PAIN UPPER [None]
  - ARTHROPATHY [None]
  - BENIGN PROSTATIC HYPERPLASIA [None]
  - BLOOD DISORDER [None]
  - CARDIAC DISORDER [None]
  - GALLBLADDER DISORDER [None]
  - GALLBLADDER OPERATION [None]
  - HERNIA [None]
  - HERNIA REPAIR [None]
  - HERPES ZOSTER [None]
  - INFECTION [None]
  - JOINT CREPITATION [None]
  - PROSTATIC DISORDER [None]
  - SLEEP DISORDER [None]
  - TRANSIENT ISCHAEMIC ATTACK [None]
